FAERS Safety Report 21603691 (Version 2)
Quarter: 2023Q1

REPORT INFORMATION
  Report Type: Spontaneous
  Country: ES (occurrence: ES)
  Receive Date: 20221116
  Receipt Date: 20230126
  Transmission Date: 20230417
  Serious: Yes (Hospitalization, Other)
  Sender: FDA-Public Use
  Company Number: ES-ROCHE-3210261

PATIENT
  Age: 54 Year
  Sex: Female
  Weight: 85.3 kg

DRUGS (30)
  1. RITUXIMAB [Suspect]
     Active Substance: RITUXIMAB
     Indication: Follicular lymphoma
     Dosage: 375 MG/M2, WEEKLY, SUBSEQUENT DOSE ON 11/OCT/2022
     Route: 042
     Dates: start: 20220819
  2. LENALIDOMIDE [Suspect]
     Active Substance: LENALIDOMIDE
     Indication: Follicular lymphoma
     Dosage: 20 MG, 1X/DAY
     Route: 048
     Dates: start: 20220819, end: 20220822
  3. LENALIDOMIDE [Suspect]
     Active Substance: LENALIDOMIDE
     Dosage: 20 MG, 1X/DAY
     Route: 048
     Dates: start: 20221011, end: 20221011
  4. LENALIDOMIDE [Suspect]
     Active Substance: LENALIDOMIDE
     Dosage: 20 MG, 1X/DAY
     Route: 048
     Dates: start: 20221013, end: 20221031
  5. EPCORITAMAB [Suspect]
     Active Substance: EPCORITAMAB
     Indication: Follicular lymphoma
     Dosage: SUBSEQUENT DOSE ON 11/OCT/2022
     Route: 058
     Dates: start: 20220819, end: 20220819
  6. EPCORITAMAB [Suspect]
     Active Substance: EPCORITAMAB
     Dosage: 0.16 MG, 1X/DAY
     Route: 058
     Dates: start: 20221011, end: 20221011
  7. EPCORITAMAB [Suspect]
     Active Substance: EPCORITAMAB
     Dosage: 0.8 MG, 1X/DAY
     Route: 058
     Dates: start: 20221018, end: 20221018
  8. EPCORITAMAB [Suspect]
     Active Substance: EPCORITAMAB
     Dosage: 48 MG, WEEKLY
     Route: 058
     Dates: start: 20221025
  9. METHYLPREDNISOLONE [Concomitant]
     Active Substance: METHYLPREDNISOLONE
     Dosage: SUBSEQUENT DOSES ON 18-OCT-2022, AND 25-OCT-2022
     Dates: start: 20221011
  10. TRIAMCINOLONA [TRIAMCINOLONE] [Concomitant]
     Dosage: DOSE NUMBER, UNKNOWN
  11. OMEPRAZOLE [Concomitant]
     Active Substance: OMEPRAZOLE
     Dosage: DOSE NUMBER, UNKNOWN
     Dates: start: 20220812
  12. AMBISOME [Concomitant]
     Active Substance: AMPHOTERICIN B
     Dosage: DOSE NUMBER, UNKNOWN
     Dates: start: 20220905, end: 202209
  13. ISONIAZID [Concomitant]
     Active Substance: ISONIAZID
     Dosage: DOSE NUMBER, UNKNOWN
     Dates: start: 20220812
  14. ACYCLOVIR [Concomitant]
     Active Substance: ACYCLOVIR
     Dosage: DOSE NUMBER, UNKNOWN
  15. DEXCHLORPHENIRAMINE [Concomitant]
     Active Substance: DEXCHLORPHENIRAMINE
     Dates: start: 20221018, end: 20221018
  16. DEXCHLORPHENIRAMINE [Concomitant]
     Active Substance: DEXCHLORPHENIRAMINE
     Dosage: 5 MG
     Dates: start: 20221025
  17. SULFAMETHOXAZOLE\TRIMETHOPRIM [Concomitant]
     Active Substance: SULFAMETHOXAZOLE\TRIMETHOPRIM
     Dosage: DOSE NUMBER, UNKNOWN
  18. ACETAMINOPHEN [Concomitant]
     Active Substance: ACETAMINOPHEN
     Dosage: DOSE NUMBER, UNKNOWN
     Dates: start: 20220901
  19. ACETAMINOPHEN [Concomitant]
     Active Substance: ACETAMINOPHEN
     Dosage: 1 G
     Dates: start: 20221018, end: 20221018
  20. ACETAMINOPHEN [Concomitant]
     Active Substance: ACETAMINOPHEN
     Dosage: 1 G
     Dates: start: 20221025
  21. CITALOPRAM [Concomitant]
     Active Substance: CITALOPRAM HYDROBROMIDE
     Dosage: DOSE NUMBER, UNKNOWN
  22. IVERMECTIN [Concomitant]
     Active Substance: IVERMECTIN
     Dosage: DOSE NUMBER, UNKNOWN
     Dates: start: 20221007
  23. ALLOPURINOL [Concomitant]
     Active Substance: ALLOPURINOL
     Dosage: DOSE NUMBER, UNKNOWN
     Dates: start: 20220812
  24. POLARAMINE [Concomitant]
     Active Substance: DEXCHLORPHENIRAMINE MALEATE
     Dosage: DOSE NUMBER, UNKNOWN
     Dates: start: 20220928, end: 20221006
  25. ASPIRIN [Concomitant]
     Active Substance: ASPIRIN
     Dosage: DOSE NUMBER, UNKNOWN
  26. LEVOTHYROXINE SODIUM [Concomitant]
     Active Substance: LEVOTHYROXINE SODIUM
     Dosage: DOSE NUMBER, UNKNOWN
  27. SARCOP [Concomitant]
     Dosage: UNK
     Dates: start: 20221007, end: 20221016
  28. GRANULOCYTE COLONY-STIMULATING FACTOR NOS [Concomitant]
     Active Substance: GRANULOCYTE COLONY-STIMULATING FACTOR NOS
     Dosage: UNK
     Dates: start: 20221102
  29. FEBUXOSTAT [Concomitant]
     Active Substance: FEBUXOSTAT
     Dosage: UNK
     Dates: start: 20221006
  30. ATARAX [Concomitant]
     Active Substance: HYDROXYZINE HYDROCHLORIDE
     Dosage: UNK
     Dates: start: 20221001, end: 20221010

REACTIONS (2)
  - Cytokine release syndrome [Recovered/Resolved]
  - Pyrexia [Recovered/Resolved]

NARRATIVE: CASE EVENT DATE: 20221019
